FAERS Safety Report 7635468-0 (Version None)
Quarter: 2011Q3

REPORT INFORMATION
  Report Type: 
  Country: None (occurrence: None)
  Receive Date: 20110726
  Receipt Date: 20110726
  Transmission Date: 20111222
  Serious: No
  Sender: FDA-Public Use
  Company Number: None

PATIENT
  Age: 53 Year
  Sex: Female
  Weight: 90.718 kg

DRUGS (1)
  1. BENZTROPINE MESYLATE [Suspect]
     Dosage: 2 MG
     Route: 048

REACTIONS (1)
  - BLADDER DILATATION [None]
